FAERS Safety Report 9997692 (Version 1)
Quarter: 2014Q1

REPORT INFORMATION
  Report Type: Spontaneous
  Country: US (occurrence: US)
  Receive Date: 20140311
  Receipt Date: 20140311
  Transmission Date: 20141002
  Serious: No
  Sender: FDA-Public Use
  Company Number: US-PFIZER INC-2014064551

PATIENT
  Sex: Female
  Weight: 77.1 kg

DRUGS (2)
  1. ADVIL [Suspect]
     Indication: PAIN IN EXTREMITY
     Dosage: 256 MG, ONCE A DAY
     Route: 048
     Dates: start: 20140301, end: 201403
  2. ADVIL [Suspect]
     Dosage: 256 MG, TWO TIMES A DAY
     Route: 048
     Dates: start: 201403, end: 201403

REACTIONS (2)
  - Drug ineffective [Unknown]
  - Joint swelling [Not Recovered/Not Resolved]
